FAERS Safety Report 11754455 (Version 3)
Quarter: 2016Q1

REPORT INFORMATION
  Report Type: Report from Study
  Country: US (occurrence: US)
  Receive Date: 20151119
  Receipt Date: 20160106
  Transmission Date: 20160525
  Serious: Yes (Hospitalization, Other)
  Sender: FDA-Public Use
  Company Number: US-GILEAD-2015-0182597

PATIENT
  Age: 49 Year
  Sex: Male
  Weight: 104.3 kg

DRUGS (5)
  1. TYVASO [Suspect]
     Active Substance: TREPROSTINIL
     Indication: PULMONARY HYPERTENSION
     Dosage: 18 TO 90 UG QID
     Route: 055
     Dates: start: 20130509
  2. COUMADIN [Concomitant]
     Active Substance: WARFARIN SODIUM
  3. AMBRISENTAN [Suspect]
     Active Substance: AMBRISENTAN
     Indication: PRODUCT USED FOR UNKNOWN INDICATION
     Dosage: 10 MG, QD
     Route: 065
     Dates: start: 20130111
  4. ADCIRCA [Concomitant]
     Active Substance: TADALAFIL
  5. TYVASO [Suspect]
     Active Substance: TREPROSTINIL
     Dosage: 90 UG, QID
     Route: 055

REACTIONS (10)
  - Head injury [Unknown]
  - Balance disorder [Unknown]
  - Back injury [Unknown]
  - Pain [Unknown]
  - Fall [Unknown]
  - Asthenia [Unknown]
  - Haemoglobin decreased [Unknown]
  - Loss of consciousness [Unknown]
  - Anaemia [Unknown]
  - Gastric varices haemorrhage [Unknown]

NARRATIVE: CASE EVENT DATE: 201511
